FAERS Safety Report 10602053 (Version 2)
Quarter: 2015Q1

REPORT INFORMATION
  Report Type: Spontaneous
  Country: JP (occurrence: None)
  Receive Date: 20141120
  Receipt Date: 20150113
  Transmission Date: 20150720
  Serious: Yes (Other)
  Sender: FDA-Public Use
  Company Number: 2010JP006134

PATIENT
  Age: 43 Year
  Sex: Female
  Weight: 58 kg

DRUGS (7)
  1. METOLATE (METHOTREXATE) [Concomitant]
  2. PROGRAF [Suspect]
     Active Substance: TACROLIMUS\TACROLIMUS ANHYDROUS
     Indication: LUPUS NEPHRITIS
     Dosage: ONCE DAILY
     Route: 048
     Dates: start: 20071105, end: 20071202
  3. AZULFIDINE EN (SULFASALAZINE) [Concomitant]
  4. CLARITIN [Concomitant]
     Active Substance: LORATADINE
  5. CELECOX (CELECOXIB) [Concomitant]
     Active Substance: CELECOXIB
  6. INFREE (INDOMETACIN FARNESIL) [Concomitant]
  7. LOXONIN (LOXOPROFEN SODIUM) [Concomitant]
     Active Substance: LOXOPROFEN SODIUM

REACTIONS (6)
  - Fibrous histiocytoma [None]
  - Lupus nephritis [None]
  - Foot fracture [None]
  - Arthralgia [None]
  - Seasonal allergy [None]
  - Condition aggravated [None]

NARRATIVE: CASE EVENT DATE: 20081022
